FAERS Safety Report 4453739-6 (Version None)
Quarter: 2004Q3

REPORT INFORMATION
  Report Type: 
  Country: None (occurrence: None)
  Receive Date: 20040920
  Receipt Date: 20040915
  Transmission Date: 20050211
  Serious: Yes (Death)
  Sender: FDA-Public Use
  Company Number: 200412776EU

PATIENT
  Age: 51 Year
  Sex: Male

DRUGS (13)
  1. KETEK [Suspect]
     Indication: BRONCHITIS ACUTE
     Route: 048
  2. XANTHIUM [Concomitant]
  3. DUOVENT [Concomitant]
  4. VENTOLIN [Concomitant]
  5. SERETIDE DISKUS [Concomitant]
  6. LYSOMUCIL [Concomitant]
  7. DEPAKINE 500 [Concomitant]
  8. MYSOLIN [Concomitant]
  9. TEMESTA [Concomitant]
  10. ASAFLOW [Concomitant]
  11. ATACAND [Concomitant]
  12. AUGMENTIN - SLOW RELEASE [Concomitant]
     Indication: BRONCHITIS ACUTE
     Route: 048
  13. MEDROL [Concomitant]
     Indication: BRONCHITIS ACUTE

REACTIONS (1)
  - DEATH [None]
